FAERS Safety Report 4634921-1 (Version None)
Quarter: 2005Q2

REPORT INFORMATION
  Report Type: 
  Country: None (occurrence: None)
  Receive Date: 20050412
  Receipt Date: 20050303
  Transmission Date: 20051028
  Serious: Yes (Death)
  Sender: FDA-Public Use
  Company Number: A-CH2005-09356

PATIENT
  Age: 43 Year
  Sex: Female

DRUGS (4)
  1. TRACLEER [Suspect]
     Indication: PULMONARY HYPERTENSION
     Dosage: 62.5 MG, BID, ORAL
     Route: 048
     Dates: start: 20040225, end: 20040323
  2. TRACLEER [Suspect]
     Dosage: 125 MG, BID, ORAL
     Route: 048
     Dates: start: 20040324, end: 20040801
  3. TRACLEER [Suspect]
     Dosage: 250 MG, BID, ORAL
     Route: 048
     Dates: start: 20040801, end: 20040901
  4. TRACLEER [Suspect]
     Dosage: 125 MG, BID, ORAL
     Route: 048
     Dates: start: 20040901, end: 20050226

REACTIONS (5)
  - ATRIAL FLUTTER [None]
  - ATRIAL TACHYCARDIA [None]
  - CONDITION AGGRAVATED [None]
  - PULMONARY OEDEMA [None]
  - PULMONARY VENO-OCCLUSIVE DISEASE [None]
